FAERS Safety Report 5087553-8 (Version None)
Quarter: 2006Q3

REPORT INFORMATION
  Report Type: 
  Country: None (occurrence: None)
  Receive Date: 20060824
  Receipt Date: 20060821
  Transmission Date: 20061208
  Serious: Yes (Other)
  Sender: FDA-Public Use
  Company Number: N200608-1245

PATIENT
  Age: 77 Year
  Sex: Female

DRUGS (3)
  1. AUGMENTIN '125' [Suspect]
     Indication: DRUG USE FOR UNKNOWN INDICATION
     Route: 048
     Dates: start: 20060801
  2. FAMOTIDINE [Concomitant]
     Route: 048
  3. MIANSERIN HYDROCHLORIDE [Concomitant]
     Route: 048

REACTIONS (3)
  - GLOSSITIS [None]
  - GLOSSODYNIA [None]
  - TONGUE ERUPTION [None]
